FAERS Safety Report 23515357 (Version 1)
Quarter: 2024Q1

REPORT INFORMATION
  Report Type: Spontaneous
  Country: ES (occurrence: ES)
  Receive Date: 20240213
  Receipt Date: 20240213
  Transmission Date: 20240410
  Serious: Yes (Hospitalization, Other)
  Sender: FDA-Public Use
  Company Number: ES-CADILA HEALTHCARE LIMITED-ES-ZYDUS-103126

PATIENT

DRUGS (4)
  1. AZITHROMYCIN [Suspect]
     Active Substance: AZITHROMYCIN
     Indication: Campylobacter colitis
     Dosage: 500 MILLIGRAM
     Route: 065
  2. AMITRIPTYLINE [Concomitant]
     Active Substance: AMITRIPTYLINE
     Indication: Pneumonia
     Dosage: UNK
     Route: 065
  3. HYDROCHLOROTHIAZIDE [Concomitant]
     Active Substance: HYDROCHLOROTHIAZIDE
     Indication: Pneumonia
     Dosage: UNK
     Route: 065
  4. MESALAMINE [Concomitant]
     Active Substance: MESALAMINE
     Indication: Splenomegaly
     Dosage: UNK
     Route: 048

REACTIONS (1)
  - Good syndrome [Unknown]
